FAERS Safety Report 8961387 (Version 1)
Quarter: 2012Q4

REPORT INFORMATION
  Report Type: 
  Country: US (occurrence: US)
  Receive Date: 20121213
  Receipt Date: 20121213
  Transmission Date: 20130627
  Serious: No
  Sender: FDA-Public Use
  Company Number: US-ALLERGAN-1213443US

PATIENT
  Age: 26 Year
  Sex: Female

DRUGS (1)
  1. ACZONE [Suspect]
     Indication: ACNE
     Dosage: UNK
     Route: 061

REACTIONS (3)
  - Rash [Recovered/Resolved]
  - Rash papular [Recovered/Resolved]
  - Drug ineffective [Unknown]
